FAERS Safety Report 11239766 (Version 1)
Quarter: 2015Q3

REPORT INFORMATION
  Report Type: Spontaneous
  Country: US (occurrence: None)
  Receive Date: 20150701
  Receipt Date: 20150701
  Transmission Date: 20151125
  Serious: No
  Sender: FDA-Public Use
  Company Number: None

PATIENT
  Age: 73 Year
  Sex: Male
  Weight: 74.39 kg

DRUGS (16)
  1. LOSARTAN. [Concomitant]
     Active Substance: LOSARTAN
  2. ISOSORBIDE MONONITRATE. [Concomitant]
     Active Substance: ISOSORBIDE MONONITRATE
  3. FOLIC ACID. [Concomitant]
     Active Substance: FOLIC ACID
  4. PRAVASTATIN [Concomitant]
     Active Substance: PRAVASTATIN\PRAVASTATIN SODIUM
  5. DONEPEZIL. [Concomitant]
     Active Substance: DONEPEZIL
  6. VITAMIN C [Concomitant]
     Active Substance: ASCORBIC ACID
  7. HETLIOZ [Suspect]
     Active Substance: TASIMELTEON
     Indication: SLEEP DISORDER
     Dosage: 1 PILL
     Route: 048
  8. SYMBICORT [Concomitant]
     Active Substance: BUDESONIDE\FORMOTEROL FUMARATE DIHYDRATE
  9. VITAMIN B12 [Concomitant]
     Active Substance: CYANOCOBALAMIN
  10. VITAMIN B3 [Concomitant]
     Active Substance: NIACIN
  11. DONEPEZIL 10 MG [Suspect]
     Active Substance: DONEPEZIL HYDROCHLORIDE
     Indication: DEMENTIA ALZHEIMER^S TYPE
     Dosage: 1 PILL
     Route: 048
  12. RAPAFLO [Concomitant]
     Active Substance: SILODOSIN
  13. KLOR-CON [Concomitant]
     Active Substance: POTASSIUM CHLORIDE
  14. DILTIAZEM [Concomitant]
     Active Substance: DILTIAZEM
  15. MYRBETRIQ [Concomitant]
     Active Substance: MIRABEGRON
  16. FISH OIL [Concomitant]
     Active Substance: FISH OIL

REACTIONS (2)
  - Drug ineffective [None]
  - Sleep disorder [None]

NARRATIVE: CASE EVENT DATE: 20150618
